FAERS Safety Report 22089348 (Version 1)
Quarter: 2023Q1

REPORT INFORMATION
  Report Type: Report from Study
  Country: CZ (occurrence: CZ)
  Receive Date: 20230313
  Receipt Date: 20230313
  Transmission Date: 20230417
  Serious: Yes (Other)
  Sender: FDA-Public Use
  Company Number: CZ-ABBVIE-4337159

PATIENT
  Age: 51 Year
  Sex: Female

DRUGS (1)
  1. HUMIRA [Suspect]
     Active Substance: ADALIMUMAB
     Indication: Crohn^s disease
     Route: 058

REACTIONS (9)
  - Dermatitis exfoliative [Recovering/Resolving]
  - Pain of skin [Recovering/Resolving]
  - Impetigo [Recovering/Resolving]
  - Purulence [Recovering/Resolving]
  - Dermatitis exfoliative generalised [Recovering/Resolving]
  - Perioral dermatitis [Recovering/Resolving]
  - Pruritus [Recovering/Resolving]
  - Disease recurrence [Recovering/Resolving]
  - Herpes virus infection [Recovering/Resolving]

NARRATIVE: CASE EVENT DATE: 20230217
